FAERS Safety Report 8877623 (Version 1)
Quarter: 2012Q4

REPORT INFORMATION
  Report Type: 
  Country: US (occurrence: US)
  Receive Date: 20121024
  Receipt Date: 20121024
  Transmission Date: 20130627
  Serious: Yes (Other)
  Sender: FDA-Public Use
  Company Number: PHEH2012US020698

PATIENT
  Sex: Female

DRUGS (1)
  1. DIOVAN [Suspect]
     Dosage: 1.5 DF, a day
     Route: 048

REACTIONS (4)
  - Dementia [Unknown]
  - Pollakiuria [Unknown]
  - Blood pressure increased [Unknown]
  - Drug administration error [Unknown]
